FAERS Safety Report 22535643 (Version 1)
Quarter: 2023Q2

REPORT INFORMATION
  Report Type: Spontaneous
  Country: US (occurrence: US)
  Receive Date: 20230608
  Receipt Date: 20230608
  Transmission Date: 20230722
  Serious: No
  Sender: FDA-Public Use
  Company Number: US-NIPPON SHINYAKU-NIP-2023-000014

PATIENT
  Age: 13 Year
  Sex: Male
  Weight: 26.739 kg

DRUGS (5)
  1. VILTEPSO [Suspect]
     Active Substance: VILTOLARSEN
     Indication: Duchenne muscular dystrophy
     Dosage: 2144 MILLIGRAM, QWK
     Route: 042
     Dates: start: 20221130, end: 20230218
  2. ENALAPRIL MALEATE [Concomitant]
     Active Substance: ENALAPRIL MALEATE
     Indication: Product used for unknown indication
     Dosage: 2.5 ML, Q12H
     Route: 065
  3. MOXIFLOXACIN [Concomitant]
     Active Substance: MOXIFLOXACIN
     Indication: Product used for unknown indication
     Dosage: 1 DROP, BID
     Route: 047
  4. PREDNISONE [Concomitant]
     Active Substance: PREDNISONE
     Indication: Product used for unknown indication
     Dosage: 1 TAB, QD
     Route: 048
  5. DEXAMETHASONE\TOBRAMYCIN [Concomitant]
     Active Substance: DEXAMETHASONE\TOBRAMYCIN
     Indication: Product used for unknown indication
     Dosage: UNK
     Route: 047

REACTIONS (4)
  - Cystatin C abnormal [Unknown]
  - Urine analysis abnormal [Unknown]
  - Urine protein/creatinine ratio abnormal [Unknown]
  - Protein total abnormal [Unknown]

NARRATIVE: CASE EVENT DATE: 20230119
